FAERS Safety Report 20664384 (Version 1)
Quarter: 2022Q2

REPORT INFORMATION
  Report Type: Spontaneous
  Country: IT (occurrence: None)
  Receive Date: 20220401
  Receipt Date: 20220401
  Transmission Date: 20220720
  Serious: Yes (Other)
  Sender: FDA-Public Use
  Company Number: 2022A127570

PATIENT
  Age: 74 Year
  Sex: Female
  Weight: 85 kg

DRUGS (3)
  1. LYNPARZA [Suspect]
     Active Substance: OLAPARIB
     Indication: Serous cystadenocarcinoma ovary
     Route: 048
     Dates: start: 20210706, end: 20220224
  2. LYNPARZA [Suspect]
     Active Substance: OLAPARIB
     Indication: Serous cystadenocarcinoma ovary
     Route: 048
     Dates: start: 20210706, end: 20220224
  3. METOPROLOL [Concomitant]
     Active Substance: METOPROLOL
     Indication: Hypertension
     Dosage: 100.0MG UNKNOWN
     Route: 048
     Dates: start: 20220316

REACTIONS (3)
  - Pneumonitis [Recovering/Resolving]
  - Eosinophilia [Recovering/Resolving]
  - Rash [Recovering/Resolving]

NARRATIVE: CASE EVENT DATE: 20220224
